FAERS Safety Report 7706828-4 (Version None)
Quarter: 2011Q3

REPORT INFORMATION
  Report Type: 
  Country: None (occurrence: None)
  Receive Date: 20110824
  Receipt Date: 20110810
  Transmission Date: 20111222
  Serious: Yes (Other)
  Sender: FDA-Public Use
  Company Number: US-CELGENEUS-163-21880-11081400

PATIENT
  Sex: Male

DRUGS (16)
  1. ACYCLOVIR [Concomitant]
     Route: 065
  2. NEURONTIN [Concomitant]
     Route: 065
  3. BACTRIM [Concomitant]
     Route: 065
  4. DEXAMETHASONE [Concomitant]
     Route: 065
  5. LOMOTIL [Concomitant]
     Route: 065
  6. TRUVADA [Concomitant]
     Route: 065
  7. REVLIMID [Suspect]
     Indication: MULTIPLE MYELOMA
     Dosage: 5 MILLIGRAM
     Route: 048
     Dates: start: 20110713, end: 20110101
  8. FLUCONAZOLE [Concomitant]
     Route: 065
  9. LIPITOR [Concomitant]
     Route: 065
  10. METOPROLOL [Concomitant]
     Route: 065
  11. ZOFRAN [Concomitant]
     Route: 065
  12. AMBIEN [Concomitant]
     Route: 065
  13. DILAUDID [Concomitant]
     Route: 065
  14. LOVENOX [Concomitant]
     Route: 065
  15. LEXAPRO [Concomitant]
     Route: 065
  16. SELZENTRY [Concomitant]
     Route: 065

REACTIONS (1)
  - THROAT CANCER [None]
